FAERS Safety Report 23432352 (Version 1)
Quarter: 2024Q1

REPORT INFORMATION
  Report Type: Spontaneous
  Country: US (occurrence: None)
  Receive Date: 20240122
  Receipt Date: 20240122
  Transmission Date: 20240410
  Serious: No
  Sender: FDA-Public Use
  Company Number: None

PATIENT
  Age: 66 Year
  Sex: Female

DRUGS (1)
  1. POMALYST [Suspect]
     Active Substance: POMALIDOMIDE
     Indication: Plasma cell myeloma
     Dosage: 1MG QD ORAL
     Route: 048
     Dates: start: 20230609, end: 20240102

REACTIONS (2)
  - Neutropenia [None]
  - Plasma cell myeloma [None]

NARRATIVE: CASE EVENT DATE: 20240102
